FAERS Safety Report 25132714 (Version 1)
Quarter: 2025Q1

REPORT INFORMATION
  Report Type: Spontaneous
  Country: CN (occurrence: CN)
  Receive Date: 20250328
  Receipt Date: 20250328
  Transmission Date: 20250408
  Serious: Yes (Other)
  Sender: BEIGENE
  Company Number: CN-BEIGENE-BGN-2025-004630

PATIENT
  Age: 47 Year
  Weight: 53 kg

DRUGS (4)
  1. TISLELIZUMAB [Suspect]
     Active Substance: TISLELIZUMAB
     Indication: Oesophageal squamous cell carcinoma metastatic
  2. TISLELIZUMAB [Suspect]
     Active Substance: TISLELIZUMAB
     Indication: Metastases to lymph nodes
     Route: 041
  3. TISLELIZUMAB [Suspect]
     Active Substance: TISLELIZUMAB
     Route: 041
  4. TISLELIZUMAB [Suspect]
     Active Substance: TISLELIZUMAB

REACTIONS (5)
  - Hypothyroidism [Recovering/Resolving]
  - Hepatotoxicity [Recovering/Resolving]
  - Flushing [Recovering/Resolving]
  - Rash [Recovering/Resolving]
  - Infection [Recovering/Resolving]
